FAERS Safety Report 24537449 (Version 2)
Quarter: 2024Q4

REPORT INFORMATION
  Report Type: Spontaneous
  Country: US (occurrence: US)
  Receive Date: 20241022
  Receipt Date: 20241029
  Transmission Date: 20250115
  Serious: No
  Sender: ABBVIE
  Company Number: US-ABBVIE-5971225

PATIENT

DRUGS (1)
  1. BOTOX COSMETIC [Suspect]
     Active Substance: ONABOTULINUMTOXINA
     Indication: Skin cosmetic procedure
     Dosage: TIME INTERVAL: AS NECESSARY: LAST ADMINISTRATION DATE: 2022?FREQUENCY: ONCE EVERY 3 TO 6 MONTHS, ...
     Route: 030
     Dates: start: 2022

REACTIONS (3)
  - Drug ineffective [Not Recovered/Not Resolved]
  - Multiple use of single-use product [Unknown]
  - Off label use [Unknown]
